FAERS Safety Report 4711490-9 (Version None)
Quarter: 2005Q3

REPORT INFORMATION
  Report Type: 
  Country: None (occurrence: None)
  Receive Date: 20050711
  Receipt Date: 20050629
  Transmission Date: 20060218
  Serious: Yes (Other)
  Sender: FDA-Public Use
  Company Number: US-2005-012139

PATIENT
  Age: 28 Year
  Sex: Female
  Weight: 79.4 kg

DRUGS (1)
  1. MIRENA [Suspect]
     Indication: CONTRACEPTION
     Dosage: 20 UG/DAY, CONT, INTRA-UTERINE
     Route: 015
     Dates: start: 20040301, end: 20050609

REACTIONS (5)
  - COMPLICATION OF DEVICE REMOVAL [None]
  - GENITAL HAEMORRHAGE [None]
  - HAEMORRHAGE [None]
  - IUCD COMPLICATION [None]
  - PAIN [None]
